FAERS Safety Report 8002549-1 (Version None)
Quarter: 2011Q4

REPORT INFORMATION
  Report Type: 
  Country: None (occurrence: None)
  Receive Date: 20111222
  Receipt Date: 20111221
  Transmission Date: 20120403
  Serious: Yes (Hospitalization)
  Sender: FDA-Public Use
  Company Number: JP-B.I. PHARMACEUTICALS,INC./RIDGEFIELD-2011-BP-28480NB

PATIENT
  Sex: Male
  Weight: 44 kg

DRUGS (11)
  1. LEVOFLOXACIN [Concomitant]
     Dosage: 500 MG
     Route: 048
     Dates: start: 20101214, end: 20101217
  2. HYDROCORTISONE SODIUM SUCCINATE [Concomitant]
     Dosage: 100 MG
     Route: 042
     Dates: start: 20101206, end: 20101208
  3. MUCOSOLVAN [Concomitant]
     Indication: EMPHYSEMA
     Dosage: 45 MG
     Route: 048
  4. GARENOXACIN MESYLATE [Concomitant]
     Dosage: 200 MG
     Route: 048
     Dates: end: 20101205
  5. SOLDEM 3 [Concomitant]
     Dosage: 1000 ML
     Route: 042
     Dates: start: 20101207, end: 20101218
  6. ZOSYN [Concomitant]
     Dosage: 13.5 G
     Route: 042
     Dates: start: 20101206, end: 20101213
  7. POTACOL-R [Concomitant]
     Dosage: 500 ML
     Route: 042
     Dates: start: 20101206, end: 20101210
  8. SPIRIVA [Suspect]
     Indication: EMPHYSEMA
     Dosage: 5 MCG
     Route: 055
     Dates: start: 20101120, end: 20101228
  9. BISOLVON [Concomitant]
     Indication: EMPHYSEMA
     Route: 048
  10. LEVOTHYROXINE SODIUM [Concomitant]
     Dosage: 50 MCG
     Route: 048
  11. SODIUM CHLORIDE SOLUTION.ISOTONIC [Concomitant]
     Dosage: 300 ML
     Route: 042
     Dates: start: 20101206, end: 20101213

REACTIONS (1)
  - PNEUMONIA [None]
